FAERS Safety Report 7272513-9 (Version None)
Quarter: 2011Q1

REPORT INFORMATION
  Report Type: 
  Country: None (occurrence: None)
  Receive Date: 20110203
  Receipt Date: 20110126
  Transmission Date: 20110831
  Serious: Yes (Hospitalization)
  Sender: FDA-Public Use
  Company Number: NL-B.I. PHARMACEUTICALS,INC./RIDGEFIELD-2011-DE-00534DE

PATIENT
  Sex: Male
  Weight: 77 kg

DRUGS (8)
  1. TAMSULOSINE [Concomitant]
     Indication: BENIGN PROSTATIC HYPERPLASIA
     Dosage: 0.4 MG
     Route: 048
     Dates: start: 20060327
  2. DABIGATRAN [Suspect]
     Indication: CEREBROVASCULAR ACCIDENT PROPHYLAXIS
     Route: 048
     Dates: start: 20090209
  3. DABIGATRAN [Suspect]
     Indication: ATRIAL FIBRILLATION
  4. METROPROLOL TART [Concomitant]
     Indication: ATRIAL FIBRILLATION
     Dosage: 100 MG
     Route: 048
     Dates: start: 20050308
  5. DIOVAN [Concomitant]
     Indication: HYPERTENSION
     Dosage: 80 MG
     Route: 048
     Dates: start: 20050308
  6. PANADOL ARTHROSE [Concomitant]
     Indication: OSTEOARTHRITIS
     Dosage: 4000 MG
     Route: 048
     Dates: start: 20060327
  7. LANOXIN [Concomitant]
     Indication: ATRIAL FIBRILLATION
     Dosage: 0.125 MG
     Route: 048
     Dates: start: 20050308
  8. SELELCTINE [Concomitant]
     Indication: HYPERCHOLESTEROLAEMIA
     Dosage: 40 MG
     Route: 048
     Dates: start: 20050308

REACTIONS (1)
  - MYOCARDIAL INFARCTION [None]
